FAERS Safety Report 22092618 (Version 1)
Quarter: 2023Q1

REPORT INFORMATION
  Report Type: Spontaneous
  Country: US (occurrence: None)
  Receive Date: 20230311
  Receipt Date: 20230311
  Transmission Date: 20230417
  Serious: Yes (Other)
  Sender: FDA-Public Use
  Company Number: None

PATIENT
  Age: 54 Year
  Sex: Female
  Weight: 73.48 kg

DRUGS (18)
  1. OZEMPIC [Suspect]
     Active Substance: SEMAGLUTIDE
     Indication: Diabetes mellitus
     Route: 030
     Dates: start: 20230305
  2. LEVOTHYROXINE [Concomitant]
     Active Substance: LEVOTHYROXINE
  3. DILTIAZEM [Concomitant]
     Active Substance: DILTIAZEM
  4. SINGULAIR [Concomitant]
     Active Substance: MONTELUKAST SODIUM
  5. GLIPIZIDE [Concomitant]
     Active Substance: GLIPIZIDE
  6. ROSUVASTATIN [Concomitant]
     Active Substance: ROSUVASTATIN
  7. OZEMPIC [Concomitant]
     Active Substance: SEMAGLUTIDE
  8. METFORMIN [Concomitant]
     Active Substance: METFORMIN HYDROCHLORIDE
  9. VITAMINS [Concomitant]
     Active Substance: VITAMINS
  10. VITAMIN C [Concomitant]
     Active Substance: ASCORBIC ACID
  11. ZINC [Concomitant]
     Active Substance: ZINC
  12. LORATADINE [Concomitant]
     Active Substance: LORATADINE
  13. Citirizine [Concomitant]
  14. ASPIRIN [Concomitant]
     Active Substance: ASPIRIN
  15. OMEPRAZOLE [Concomitant]
     Active Substance: OMEPRAZOLE
  16. LATANOPROST [Concomitant]
     Active Substance: LATANOPROST
  17. VITAMIN D3 [Concomitant]
     Active Substance: CHOLECALCIFEROL
  18. VITAMIN B6 [Concomitant]
     Active Substance: PYRIDOXINE HYDROCHLORIDE

REACTIONS (7)
  - Headache [None]
  - Nausea [None]
  - Impaired work ability [None]
  - Diarrhoea [None]
  - Feeding disorder [None]
  - Vomiting [None]
  - Insurance issue [None]

NARRATIVE: CASE EVENT DATE: 20230306
